FAERS Safety Report 20058404 (Version 1)
Quarter: 2021Q4

REPORT INFORMATION
  Report Type: Spontaneous
  Country: US (occurrence: None)
  Receive Date: 20211111
  Receipt Date: 20211111
  Transmission Date: 20220303
  Serious: No
  Sender: FDA-Public Use
  Company Number: None

PATIENT

DRUGS (1)
  1. NAFCILLIN SODIUM [Suspect]
     Active Substance: NAFCILLIN SODIUM

REACTIONS (2)
  - Incorrect drug administration rate [None]
  - Wrong technique in product usage process [None]
